FAERS Safety Report 25616528 (Version 2)
Quarter: 2025Q3

REPORT INFORMATION
  Report Type: Spontaneous
  Country: GB (occurrence: GB)
  Receive Date: 20250729
  Receipt Date: 20250925
  Transmission Date: 20251021
  Serious: Yes (Hospitalization)
  Sender: MYLAN
  Company Number: GB-MYLANLABS-2025M1006443

PATIENT
  Sex: Female

DRUGS (8)
  1. CLOZARIL [Suspect]
     Active Substance: CLOZAPINE
     Indication: Schizophrenia
     Route: 048
     Dates: start: 20070925, end: 20250302
  2. CLOZARIL [Suspect]
     Active Substance: CLOZAPINE
     Dates: start: 20070925, end: 20250302
  3. CLOZARIL [Suspect]
     Active Substance: CLOZAPINE
     Dates: start: 20070925, end: 20250302
  4. CLOZARIL [Suspect]
     Active Substance: CLOZAPINE
     Route: 048
     Dates: start: 20070925, end: 20250302
  5. CLOZARIL [Suspect]
     Active Substance: CLOZAPINE
     Route: 048
  6. CLOZARIL [Suspect]
     Active Substance: CLOZAPINE
  7. CLOZARIL [Suspect]
     Active Substance: CLOZAPINE
  8. CLOZARIL [Suspect]
     Active Substance: CLOZAPINE
     Route: 048

REACTIONS (6)
  - Hospitalisation [Unknown]
  - Eosinophilia [Unknown]
  - Differential white blood cell count abnormal [Unknown]
  - Disorientation [Unknown]
  - Full blood count abnormal [Unknown]
  - Treatment noncompliance [Unknown]
